FAERS Safety Report 8738720 (Version 3)
Quarter: 2012Q4

REPORT INFORMATION
  Report Type: 
  Country: US (occurrence: US)
  Receive Date: 20120823
  Receipt Date: 20120926
  Transmission Date: 20130627
  Serious: Yes (Hospitalization)
  Sender: FDA-Public Use
  Company Number: US-PFIZER INC-2012203162

PATIENT
  Age: 61 Year
  Sex: Male
  Weight: 92.5 kg

DRUGS (10)
  1. ADRIAMYCIN [Suspect]
     Indication: MULTIPLE MYELOMA
     Dosage: 20 mg, D1 and D8, every 3 weeks
     Route: 042
     Dates: start: 20110307, end: 20110714
  2. VELCADE [Suspect]
     Indication: MULTIPLE MYELOMA
     Dosage: 2.6 mg,D1,4,8,11 every 3 weeks
     Route: 042
     Dates: start: 20110307, end: 20120625
  3. AREDIA [Suspect]
     Indication: OSTEOLYSIS
     Dosage: 90 mg, D1 every 4 weeks
     Route: 042
     Dates: start: 20110307
  4. DECADRON [Concomitant]
     Indication: NAUSEA
     Dosage: 40 mg, D 1 and 8 every 3 weeks
     Dates: start: 20110307, end: 20110425
  5. DECADRON [Concomitant]
     Indication: PROPHYLAXIS
  6. DECADRON [Concomitant]
     Indication: PROPHYLAXIS
  7. PEPCID [Concomitant]
     Indication: PROPHYLAXIS
     Dosage: 20 mg, D 1,4,8 and 11 every 3 weeks
     Dates: start: 20110307, end: 20120625
  8. PHENERGAN [Concomitant]
     Indication: PROPHYLAXIS
     Dosage: 12.5 mg, D 1,4,8 and 11 every 3 weeks
     Dates: start: 20110307, end: 20120625
  9. ALOXI [Concomitant]
     Dosage: 0.25 mg, D 1 and 8 every 3 weeks
     Dates: start: 20110307, end: 20110711
  10. KYTRIL [Concomitant]
     Indication: PROPHYLAXIS OF NAUSEA AND VOMITING
     Dosage: 1 mg, D 4 abd 11 every 3 weeks
     Dates: start: 20110310, end: 20120625

REACTIONS (1)
  - Deep vein thrombosis [Recovered/Resolved]
